FAERS Safety Report 5093704-1 (Version None)
Quarter: 2006Q3

REPORT INFORMATION
  Report Type: 
  Country: None (occurrence: None)
  Receive Date: 20060831
  Receipt Date: 20051011
  Transmission Date: 20061208
  Serious: Yes (Other)
  Sender: FDA-Public Use
  Company Number: PHEH2005US11369

PATIENT
  Age: 79 Year
  Sex: Male

DRUGS (8)
  1. AREDIA [Suspect]
     Indication: MULTIPLE MYELOMA
  2. PREVACID [Concomitant]
  3. OXYCONTIN [Concomitant]
  4. PREDNISONE TAB [Concomitant]
  5. OXYCODONE HCL [Concomitant]
  6. TAMSULOSIN HYDROCHLORIDE [Concomitant]
  7. ALLOPURINOL [Concomitant]
  8. LORAZEPAM [Concomitant]

REACTIONS (10)
  - ANXIETY [None]
  - DECREASED INTEREST [None]
  - GENERAL PHYSICAL HEALTH DETERIORATION [None]
  - ORAL DISCOMFORT [None]
  - OSTEONECROSIS [None]
  - PAIN [None]
  - SINUSITIS [None]
  - TENDERNESS [None]
  - TOOTH DISORDER [None]
  - TOOTH EXTRACTION [None]
